FAERS Safety Report 5976167-0 (Version None)
Quarter: 2008Q4

REPORT INFORMATION
  Report Type: 
  Country: None (occurrence: None)
  Receive Date: 20081202
  Receipt Date: 20081125
  Transmission Date: 20090506
  Serious: Yes (Death, Hospitalization)
  Sender: FDA-Public Use
  Company Number: ES-TEVA-181300ISR

PATIENT

DRUGS (4)
  1. FLUOROURACIL [Suspect]
     Indication: COLON CANCER
     Route: 042
     Dates: start: 20080416, end: 20080903
  2. FOLINIC ACID [Suspect]
     Indication: COLON CANCER
     Route: 042
     Dates: start: 20080416, end: 20080903
  3. OXALIPLATIN [Suspect]
     Indication: COLON CANCER
     Route: 042
     Dates: start: 20080416, end: 20080902
  4. CETUXIMAB (CHIMERIC ANTI-EGFR MAB) [Suspect]
     Indication: COLON CANCER
     Route: 042
     Dates: start: 20080416, end: 20080902

REACTIONS (5)
  - DYSPNOEA [None]
  - LEUKOPENIA [None]
  - NEUTROPENIA [None]
  - PNEUMONIA [None]
  - PYREXIA [None]
